FAERS Safety Report 20430924 (Version 1)
Quarter: 2022Q1

REPORT INFORMATION
  Report Type: Spontaneous
  Country: US (occurrence: US)
  Receive Date: 20220204
  Receipt Date: 20220204
  Transmission Date: 20220424
  Serious: No
  Sender: FDA-Public Use
  Company Number: US-OYSTER POINT PHARMA, INC.-2021OYS00045

PATIENT
  Age: 34 Year
  Sex: Male
  Weight: 92.986 kg

DRUGS (1)
  1. TYRVAYA [Suspect]
     Active Substance: VARENICLINE TARTRATE
     Indication: Dry eye
     Dosage: 1 SPRAY, 1X/DAY
     Dates: start: 20211102, end: 20211115

REACTIONS (3)
  - Pharyngeal paraesthesia [Recovered/Resolved]
  - Sneezing [Recovered/Resolved]
  - Off label use [Recovered/Resolved]

NARRATIVE: CASE EVENT DATE: 20211101
